FAERS Safety Report 24423156 (Version 1)
Quarter: 2024Q4

REPORT INFORMATION
  Report Type: Other
  Country: FR (occurrence: FR)
  Receive Date: 20241010
  Receipt Date: 20241010
  Transmission Date: 20250115
  Serious: Yes (Hospitalization, Other)
  Sender: EYWA PHARMA
  Company Number: FR-Eywa Pharma Inc.-2162779

PATIENT
  Age: 24 Year
  Sex: Male

DRUGS (2)
  1. ACETAZOLAMIDE [Suspect]
     Active Substance: ACETAZOLAMIDE
     Indication: Iridocyclitis
  2. VALACYCLOVIR HYDROCHLORIDE [Concomitant]
     Active Substance: VALACYCLOVIR HYDROCHLORIDE

REACTIONS (3)
  - Retinopathy [Recovered/Resolved]
  - Product use in unapproved indication [Unknown]
  - Arterial occlusive disease [Recovered/Resolved]
